FAERS Safety Report 21241993 (Version 1)
Quarter: 2022Q3

REPORT INFORMATION
  Report Type: Report from Study
  Country: US (occurrence: US)
  Receive Date: 20220823
  Receipt Date: 20220823
  Transmission Date: 20221026
  Serious: Yes (Hospitalization, Other)
  Sender: FDA-Public Use
  Company Number: US-BRISTOL-MYERS SQUIBB COMPANY-2022-091274

PATIENT
  Age: 65 Year
  Sex: Female
  Weight: 60.1 kg

DRUGS (1)
  1. REVLIMID [Suspect]
     Active Substance: LENALIDOMIDE
     Indication: Plasma cell myeloma
     Dosage: DAILY FOR 21 DAYS, THEN 7 DAYS OFF, RESUMED ON 08-AUG-2022 FOR 1ST CYCLE.
     Route: 048
     Dates: start: 202204

REACTIONS (1)
  - Abscess intestinal [Unknown]
